FAERS Safety Report 6104881-5 (Version None)
Quarter: 2009Q1

REPORT INFORMATION
  Report Type: 
  Country: None (occurrence: None)
  Receive Date: 20090306
  Receipt Date: 20090220
  Transmission Date: 20090719
  Serious: Yes (Hospitalization, Disabling)
  Sender: FDA-Public Use
  Company Number: BE-ASTRAZENECA-2009AC00691

PATIENT
  Age: 10228 Day
  Sex: Male

DRUGS (5)
  1. CRESTOR [Suspect]
     Route: 048
     Dates: start: 20081031
  2. PAROXETINE HCL [Concomitant]
     Indication: DEPRESSION
     Route: 048
  3. PAROXETINE HCL [Concomitant]
     Indication: EPILEPSY
     Route: 048
  4. PAROXETINE HCL [Concomitant]
     Indication: HYPERVENTILATION
     Route: 048
  5. XANAX [Concomitant]

REACTIONS (1)
  - EPILEPSY [None]
